FAERS Safety Report 7375056-7 (Version None)
Quarter: 2011Q1

REPORT INFORMATION
  Report Type: 
  Country: None (occurrence: None)
  Receive Date: 20110325
  Receipt Date: 20110323
  Transmission Date: 20110831
  Serious: Yes (Death, Hospitalization)
  Sender: FDA-Public Use
  Company Number: PHHY2011US23832

PATIENT
  Sex: Female
  Weight: 97 kg

DRUGS (1)
  1. EXJADE [Suspect]
     Indication: ANAEMIA HAEMOLYTIC AUTOIMMUNE
     Dosage: 2000 MG, QD
     Route: 048
     Dates: start: 20090910, end: 20100811

REACTIONS (3)
  - DEATH [None]
  - ANAEMIA [None]
  - FATIGUE [None]
